FAERS Safety Report 25233973 (Version 1)
Quarter: 2025Q2

REPORT INFORMATION
  Report Type: Other
  Country: CH (occurrence: CH)
  Receive Date: 20250424
  Receipt Date: 20250424
  Transmission Date: 20250717
  Serious: Yes (Hospitalization, Other)
  Sender: Atnahs Healthcare
  Company Number: CH-ATNAHS-ATNAHS20241201066

PATIENT
  Age: 50 Year
  Sex: Male
  Weight: 80 kg

DRUGS (26)
  1. VALIUM [Suspect]
     Active Substance: DIAZEPAM
     Indication: Drug withdrawal syndrome
     Dates: start: 20220402, end: 2022
  2. OXAZEPAM [Suspect]
     Active Substance: OXAZEPAM
     Indication: Insomnia
     Dates: start: 20201211, end: 202102
  3. OXAZEPAM [Suspect]
     Active Substance: OXAZEPAM
     Indication: Neuropsychological symptoms
  4. LORAZEPAM [Suspect]
     Active Substance: LORAZEPAM
     Indication: Drug withdrawal syndrome
     Dates: start: 20210209, end: 20210816
  5. XANAX [Suspect]
     Active Substance: ALPRAZOLAM
     Indication: Drug withdrawal syndrome
     Dosage: 0.5 MG, 2X/DAY
     Dates: start: 20210816, end: 202108
  6. XANAX [Suspect]
     Active Substance: ALPRAZOLAM
     Indication: Drug intolerance
  7. BROMAZEPAM [Suspect]
     Active Substance: BROMAZEPAM
     Indication: Drug withdrawal syndrome
     Dates: start: 202108, end: 202112
  8. PRAZEPAM [Suspect]
     Active Substance: PRAZEPAM
     Indication: Drug withdrawal syndrome
     Dosage: UNK UNK, 1X/DAY
     Dates: start: 20211209, end: 202203
  9. PRAZEPAM [Suspect]
     Active Substance: PRAZEPAM
  10. PRAZEPAM [Suspect]
     Active Substance: PRAZEPAM
  11. RIVOTRIL [Suspect]
     Active Substance: CLONAZEPAM
     Indication: Drug withdrawal syndrome
     Dates: start: 20220415, end: 202204
  12. PAROXETINE [Concomitant]
     Active Substance: PAROXETINE
     Indication: Somnolence
  13. SEROQUEL [Suspect]
     Active Substance: QUETIAPINE FUMARATE
     Indication: Product used for unknown indication
  14. ZYPREXA [Suspect]
     Active Substance: OLANZAPINE
     Indication: Product used for unknown indication
     Dates: start: 1996
  15. SERTRALINE [Suspect]
     Active Substance: SERTRALINE HYDROCHLORIDE
     Indication: Product used for unknown indication
  16. ARIPIPRAZOLE [Concomitant]
     Active Substance: ARIPIPRAZOLE
     Indication: Akathisia
  17. ESCITALOPRAM [Concomitant]
     Active Substance: ESCITALOPRAM OXALATE
     Indication: Product used for unknown indication
  18. PREGABALIN [Concomitant]
     Active Substance: PREGABALIN
     Indication: Product used for unknown indication
  19. LITHIUM [Concomitant]
     Active Substance: LITHIUM
     Indication: Product used for unknown indication
  20. VALPROATE SODIUM [Concomitant]
     Active Substance: VALPROATE SODIUM
     Indication: Product used for unknown indication
  21. LEVOMEPROMAZINE [Concomitant]
     Active Substance: LEVOMEPROMAZINE
     Indication: Product used for unknown indication
  22. LAMOTRIGINE [Concomitant]
     Active Substance: LAMOTRIGINE
     Indication: Product used for unknown indication
  23. REBOXETINE [Concomitant]
     Active Substance: REBOXETINE
     Indication: Product used for unknown indication
  24. ST. JOHN^S WORT [Concomitant]
     Active Substance: ST. JOHN^S WORT
     Indication: Product used for unknown indication
  25. FLUVOXAMINE [Concomitant]
     Active Substance: FLUVOXAMINE
     Indication: Product used for unknown indication
  26. CLORAZEPATE DIPOTASSIUM [Concomitant]
     Active Substance: CLORAZEPATE DIPOTASSIUM
     Indication: Product used for unknown indication

REACTIONS (5)
  - Drug withdrawal syndrome [Not Recovered/Not Resolved]
  - Anxiety [Not Recovered/Not Resolved]
  - Drug ineffective [Unknown]
  - Withdrawal syndrome [Not Recovered/Not Resolved]
  - Drug intolerance [Not Recovered/Not Resolved]

NARRATIVE: CASE EVENT DATE: 20201201
